FAERS Safety Report 7469260-7 (Version None)
Quarter: 2011Q2

REPORT INFORMATION
  Report Type: 
  Country: None (occurrence: None)
  Receive Date: 20110510
  Receipt Date: 20110428
  Transmission Date: 20111010
  Serious: Yes (Other)
  Sender: FDA-Public Use
  Company Number: KZ-JNJFOC-20101103543

PATIENT
  Sex: Female

DRUGS (3)
  1. CONVULEXETTE [Concomitant]
     Indication: EPILEPSY
     Route: 065
  2. TOPAMAX [Suspect]
     Indication: EPILEPSY
     Dosage: 5 CAPSULES IN A DAY 3 IN THE MORNING AND 2 IN EVENING
     Route: 048
  3. TOPAMAX [Suspect]
     Route: 048

REACTIONS (5)
  - URINE URIC ACID INCREASED [None]
  - PERSONALITY DISORDER [None]
  - TABLET PHYSICAL ISSUE [None]
  - MENTAL IMPAIRMENT [None]
  - HEADACHE [None]
